FAERS Safety Report 9290072 (Version 2)
Quarter: 2013Q2

REPORT INFORMATION
  Report Type: Spontaneous
  Country: AR (occurrence: AR)
  Receive Date: 20130515
  Receipt Date: 20130612
  Transmission Date: 20140414
  Serious: Yes (Other)
  Sender: FDA-Public Use
  Company Number: AR-JNJFOC-20130503886

PATIENT
  Age: 57 Year
  Sex: Female

DRUGS (3)
  1. HUMAN CLOTTABLE PROTEIN/HUMAN THROMBIN [Suspect]
     Indication: TISSUE SEALING
     Route: 061
  2. HUMAN CLOTTABLE PROTEIN/HUMAN THROMBIN [Suspect]
     Indication: TISSUE SEALING
     Route: 061
  3. ALL OTHER THERAPEUTIC PRODUCT [Concomitant]
     Indication: TISSUE SEALING
     Route: 065

REACTIONS (3)
  - Pneumocephalus [Recovered/Resolved]
  - Off label use [Recovered/Resolved]
  - Drug ineffective for unapproved indication [Recovered/Resolved]
